FAERS Safety Report 6707293-6 (Version None)
Quarter: 2010Q2

REPORT INFORMATION
  Report Type: 
  Country: None (occurrence: None)
  Receive Date: 20100503
  Receipt Date: 20090520
  Transmission Date: 20101027
  Serious: No
  Sender: FDA-Public Use
  Company Number: US-ASTRAZENECA-2007UW07402

PATIENT
  Age: 66 Year
  Sex: Female
  Weight: 74.8 kg

DRUGS (3)
  1. NEXIUM [Suspect]
     Indication: GASTROOESOPHAGEAL REFLUX DISEASE
     Route: 048
     Dates: start: 20030101
  2. NEXIUM [Suspect]
     Route: 048
     Dates: start: 20030101
  3. SYNTHROID [Concomitant]

REACTIONS (8)
  - BARRETT'S OESOPHAGUS [None]
  - DEPRESSION [None]
  - DRUG INEFFECTIVE [None]
  - GLOSSODYNIA [None]
  - ORAL DISCOMFORT [None]
  - RASH [None]
  - STOMATITIS [None]
  - TONGUE DISCOLOURATION [None]
